FAERS Safety Report 9307934 (Version 1)
Quarter: 2013Q2

REPORT INFORMATION
  Report Type: Report from Study
  Country: US (occurrence: US)
  Receive Date: 20130524
  Receipt Date: 20130524
  Transmission Date: 20140414
  Serious: Yes (Life-Threatening, Hospitalization)
  Sender: FDA-Public Use
  Company Number: US-009507513-1305USA013081

PATIENT
  Age: 70 Year
  Sex: Male
  Weight: 78 kg

DRUGS (8)
  1. BLINDED CARBOPLATIN [Suspect]
     Indication: NON-SMALL CELL LUNG CANCER
     Dosage: 800 MG, QD
     Route: 048
     Dates: start: 20121218, end: 20121222
  2. BLINDED PACLITAXEL [Suspect]
     Indication: NON-SMALL CELL LUNG CANCER
     Dosage: 800 MG, QD
     Route: 048
     Dates: start: 20121218, end: 20121222
  3. BLINDED PLACEBO [Suspect]
     Indication: NON-SMALL CELL LUNG CANCER
     Dosage: 800 MG, QD
     Route: 048
     Dates: start: 20121218, end: 20121222
  4. BLINDED POST TRIAL THERAPY [Suspect]
     Indication: NON-SMALL CELL LUNG CANCER
     Dosage: 800 MG, QD
     Route: 048
     Dates: start: 20121218, end: 20121222
  5. BLINDED PRE TRIAL THERAPY [Suspect]
     Indication: NON-SMALL CELL LUNG CANCER
     Dosage: 800 MG, QD
     Route: 048
     Dates: start: 20121218, end: 20121222
  6. BLINDED VORINOSTAT [Suspect]
     Indication: NON-SMALL CELL LUNG CANCER
     Dosage: 800 MG, QD
     Route: 048
     Dates: start: 20121218, end: 20121222
  7. PACLITAXEL [Suspect]
     Indication: NON-SMALL CELL LUNG CANCER
     Dosage: 200 MG/M2, OVER 3 HOURS
     Route: 042
     Dates: start: 20121220, end: 20121220
  8. CARBOPLATIN [Suspect]
     Indication: NON-SMALL CELL LUNG CANCER
     Dosage: 6 MG/ML IV OVER 30 MINUTES
     Route: 042
     Dates: start: 20121220, end: 20121220

REACTIONS (2)
  - Neutrophil count decreased [Recovered/Resolved]
  - Dyspnoea [Unknown]
